FAERS Safety Report 6828099-3 (Version None)
Quarter: 2010Q3

REPORT INFORMATION
  Report Type: 
  Country: None (occurrence: None)
  Receive Date: 20100709
  Receipt Date: 20070130
  Transmission Date: 20110219
  Serious: No
  Sender: FDA-Public Use
  Company Number: US-PFIZER INC-2007008854

PATIENT
  Sex: Female
  Weight: 99.79 kg

DRUGS (14)
  1. CHANTIX [Suspect]
     Indication: SMOKING CESSATION THERAPY
     Dates: start: 20070101
  2. RISPERDAL [Interacting]
     Indication: SCHIZOPHRENIA
  3. ZOLOFT [Concomitant]
  4. SERAX [Concomitant]
  5. ACCUPRIL [Concomitant]
  6. SYNTHROID [Concomitant]
  7. LANTUS [Concomitant]
  8. GLUCOPHAGE [Concomitant]
  9. STARLIX [Concomitant]
  10. DARVOCET [Concomitant]
  11. METHOCARBAMOL [Concomitant]
  12. VALTREX [Concomitant]
  13. FENOFIBRATE [Concomitant]
  14. PRILOSEC [Concomitant]

REACTIONS (3)
  - CONSTIPATION [None]
  - DRUG INTERACTION [None]
  - HEADACHE [None]
